FAERS Safety Report 23751101 (Version 1)
Quarter: 2024Q2

REPORT INFORMATION
  Report Type: Spontaneous
  Country: PL (occurrence: PL)
  Receive Date: 20240417
  Receipt Date: 20240417
  Transmission Date: 20240716
  Serious: Yes (Other)
  Sender: FDA-Public Use
  Company Number: PL-ASTELLAS-2023US027219

PATIENT
  Age: 73 Year
  Sex: Male

DRUGS (3)
  1. GILTERITINIB [Suspect]
     Active Substance: GILTERITINIB
     Indication: Acute myeloid leukaemia
     Dosage: 120 MG/DAY (COMPLETED 3RD CYCLE)
     Route: 048
     Dates: start: 20221222, end: 202303
  2. GILTERITINIB [Suspect]
     Active Substance: GILTERITINIB
     Dosage: 200 MG, ONCE DAILY (CONTINUED AT AN INCREASED DAILY DOSE OF 200 MG )
     Route: 048
     Dates: start: 202303
  3. HYDROXYUREA [Concomitant]
     Active Substance: HYDROXYUREA
     Indication: Product used for unknown indication
     Dosage: UNK UNK, UNKNOWN FREQ.
     Route: 065

REACTIONS (6)
  - Acute myeloid leukaemia [Unknown]
  - Pneumonia [Unknown]
  - Leukocytosis [Recovered/Resolved]
  - Remission not achieved [Unknown]
  - Product use issue [Unknown]
  - Off label use [Unknown]

NARRATIVE: CASE EVENT DATE: 20230301
